FAERS Safety Report 5646434-9 (Version None)
Quarter: 2008Q1

REPORT INFORMATION
  Report Type: 
  Country: None (occurrence: None)
  Receive Date: 20080228
  Receipt Date: 20080228
  Transmission Date: 20080703
  Serious: Yes (Hospitalization)
  Sender: FDA-Public Use
  Company Number: None

PATIENT
  Sex: Male
  Weight: 108.8633 kg

DRUGS (7)
  1. COUMADIN [Suspect]
     Indication: ATRIAL FIBRILLATION
     Dosage: 5 MG PO ALTERNATE WITH 2.5 MG PO QD PRIOR TO ADMISSION
     Route: 048
  2. HYDROCHLOROTHIAZIDE [Concomitant]
  3. VERAPAMIL [Concomitant]
  4. ACCUPRIL [Concomitant]
  5. ATENOLOL [Concomitant]
  6. METFORMIN HCL [Concomitant]
  7. GLUCOTROL [Concomitant]

REACTIONS (3)
  - EPISTAXIS [None]
  - INTERNATIONAL NORMALISED RATIO INCREASED [None]
  - PROTHROMBIN TIME PROLONGED [None]
